FAERS Safety Report 11990942 (Version 1)
Quarter: 2016Q1

REPORT INFORMATION
  Report Type: Spontaneous
  Country: ES (occurrence: ES)
  Receive Date: 20160202
  Receipt Date: 20160202
  Transmission Date: 20160526
  Serious: Yes (Disabling)
  Sender: FDA-Public Use
  Company Number: ES-ALLERGAN-1602189US

PATIENT
  Age: 2 Year
  Sex: Female

DRUGS (2)
  1. BOTOX [Suspect]
     Active Substance: ONABOTULINUMTOXINA
     Indication: INJURY TO BRACHIAL PLEXUS DUE TO BIRTH TRAUMA
     Dosage: UNK, SINGLE
     Route: 030
     Dates: start: 2013, end: 2013
  2. BOTOX [Suspect]
     Active Substance: ONABOTULINUMTOXINA
     Dosage: UNK, SINGLE
     Route: 030
     Dates: start: 201207, end: 201207

REACTIONS (2)
  - Off label use [Unknown]
  - Mobility decreased [Recovered/Resolved]

NARRATIVE: CASE EVENT DATE: 20131111
